FAERS Safety Report 12314853 (Version 2)
Quarter: 2016Q2

REPORT INFORMATION
  Report Type: Spontaneous
  Country: US (occurrence: US)
  Receive Date: 20160428
  Receipt Date: 20160512
  Transmission Date: 20160815
  Serious: Yes (Other)
  Sender: FDA-Public Use
  Company Number: US-TEVA-650280USA

PATIENT
  Age: 52 Year
  Sex: Female

DRUGS (2)
  1. INDOMETACIN [Suspect]
     Active Substance: INDOMETHACIN
     Indication: HEADACHE
     Dosage: 300 MILLIGRAM DAILY;
     Route: 065
     Dates: start: 200807, end: 2010
  2. TOPIRAMATE. [Suspect]
     Active Substance: TOPIRAMATE
     Indication: MIGRAINE
     Route: 065
     Dates: start: 2007

REACTIONS (2)
  - Gastrointestinal ulcer haemorrhage [Unknown]
  - Cognitive disorder [Unknown]
